FAERS Safety Report 17499666 (Version 1)
Quarter: 2020Q1

REPORT INFORMATION
  Report Type: Spontaneous
  Country: US (occurrence: US)
  Receive Date: 20200304
  Receipt Date: 20200304
  Transmission Date: 20200409
  Serious: No
  Sender: FDA-Public Use
  Company Number: US-TAKEDA-2020TUS012069

PATIENT
  Age: 8 Year
  Sex: Male
  Weight: 29.48 kg

DRUGS (1)
  1. ENTYVIO [Suspect]
     Active Substance: VEDOLIZUMAB
     Indication: COLITIS ULCERATIVE
     Dosage: UNK
     Route: 042
     Dates: start: 20191017

REACTIONS (3)
  - Product use issue [Unknown]
  - Malaise [Unknown]
  - Haemorrhage [Unknown]

NARRATIVE: CASE EVENT DATE: 20191017
